FAERS Safety Report 25029448 (Version 1)
Quarter: 2025Q1

REPORT INFORMATION
  Report Type: Spontaneous
  Country: NL (occurrence: NL)
  Receive Date: 20250303
  Receipt Date: 20250303
  Transmission Date: 20250409
  Serious: Yes (Other)
  Sender: Haleon PLC
  Company Number: NL-HALEON-2195876

PATIENT
  Age: 50 Year
  Sex: Female
  Weight: 68 kg

DRUGS (2)
  1. DICLOFENAC [Suspect]
     Active Substance: DICLOFENAC
     Indication: Pain prophylaxis
     Route: 065
     Dates: start: 20240802, end: 20240802
  2. ACETAMINOPHEN [Concomitant]
     Active Substance: ACETAMINOPHEN
     Indication: Product used for unknown indication

REACTIONS (4)
  - Syncope [Recovering/Resolving]
  - Vomiting [Recovering/Resolving]
  - Musculoskeletal stiffness [Recovering/Resolving]
  - Chest pain [Recovering/Resolving]
